FAERS Safety Report 8850944 (Version 1)
Quarter: 2012Q4

REPORT INFORMATION
  Report Type: 
  Country: US (occurrence: US)
  Receive Date: 20121019
  Receipt Date: 20121019
  Transmission Date: 20130627
  Serious: No
  Sender: FDA-Public Use
  Company Number: US-PFIZER INC-2012257810

PATIENT
  Age: 79 Year
  Sex: Male
  Weight: 69.84 kg

DRUGS (9)
  1. VIAGRA [Suspect]
     Indication: ERECTILE DYSFUNCTION
     Dosage: 50 mg, as needed
     Dates: start: 20121014
  2. ATENOLOL [Concomitant]
     Indication: HYPERTENSION
     Dosage: 100 mg, 1x/day
  3. AMLODIPINE [Concomitant]
     Indication: HYPERTENSION
     Dosage: 10 mg, 1x/day
  4. CRESTOR [Concomitant]
     Indication: BLOOD CHOLESTEROL ABNORMAL
     Dosage: 20 mg, 1x/day
  5. METFORMIN [Concomitant]
     Indication: DIABETES MELLITUS
     Dosage: 500 mg in morning and 1000 mg at night
  6. ASPIRIN [Concomitant]
     Indication: ANTICOAGULANT THERAPY
     Dosage: 81 mg, 1x/day
  7. PLAVIX [Concomitant]
     Indication: ANTICOAGULANT THERAPY
     Dosage: 75 mg, 1x/day
  8. ALLOPURINOL [Concomitant]
     Indication: GOUT
     Dosage: 200 mg, 1x/day
  9. CHONDROITIN/GLUCOSAMINE [Concomitant]
     Indication: ARTHRALGIA
     Dosage: 1500/1250 mg daily

REACTIONS (1)
  - Drug ineffective [Unknown]
